FAERS Safety Report 13852541 (Version 2)
Quarter: 2017Q3

REPORT INFORMATION
  Report Type: Spontaneous
  Country: US (occurrence: US)
  Receive Date: 20170809
  Receipt Date: 20170829
  Transmission Date: 20171127
  Serious: Yes (Death)
  Sender: FDA-Public Use
  Company Number: US-PFIZER INC-2017338167

PATIENT
  Sex: Male

DRUGS (1)
  1. DOBUTAMINE HCL [Suspect]
     Active Substance: DOBUTAMINE HYDROCHLORIDE
     Dosage: UNK
     Route: 041

REACTIONS (3)
  - Incorrect drug administration duration [Unknown]
  - PO2 decreased [Unknown]
  - Death [Fatal]

NARRATIVE: CASE EVENT DATE: 201706
